FAERS Safety Report 5037802-7 (Version None)
Quarter: 2006Q2

REPORT INFORMATION
  Report Type: 
  Country: None (occurrence: None)
  Receive Date: 20060602
  Receipt Date: 20060411
  Transmission Date: 20061013
  Serious: Yes (Other)
  Sender: FDA-Public Use
  Company Number: US200604001967

PATIENT
  Age: 47 Year
  Sex: Female

DRUGS (4)
  1. ALIMTA [Suspect]
     Indication: NON-SMALL CELL LUNG CANCER
     Dosage: INTRAVENOUS
     Route: 042
     Dates: start: 20060329
  2. DEXAMETHASONE [Concomitant]
  3. CYANOCOBALAMIN [Concomitant]
  4. FOLIC ACID [Concomitant]

REACTIONS (6)
  - BLOOD CREATININE INCREASED [None]
  - ERYTHEMA [None]
  - NEUTROPHIL COUNT DECREASED [None]
  - PLATELET COUNT DECREASED [None]
  - PRURITUS [None]
  - WHITE BLOOD CELL COUNT DECREASED [None]
